FAERS Safety Report 24877428 (Version 1)
Quarter: 2025Q1

REPORT INFORMATION
  Report Type: Spontaneous
  Country: US (occurrence: US)
  Receive Date: 20250123
  Receipt Date: 20250123
  Transmission Date: 20250408
  Serious: No
  Sender: PAREXEL
  Company Number: US-NAPO PHARMACEUTICALS-2024US003838

PATIENT

DRUGS (1)
  1. MYTESI [Suspect]
     Active Substance: CROFELEMER
     Indication: Short-bowel syndrome
     Dosage: 125 MG, BID
     Route: 048
     Dates: start: 20240626

REACTIONS (3)
  - Alopecia [Unknown]
  - Weight increased [Unknown]
  - Off label use [Unknown]
